FAERS Safety Report 5682962-8 (Version None)
Quarter: 2008Q1

REPORT INFORMATION
  Report Type: 
  Country: None (occurrence: None)
  Receive Date: 20080327
  Receipt Date: 20080318
  Transmission Date: 20080703
  Serious: Yes (Hospitalization, Other)
  Sender: FDA-Public Use
  Company Number: US-MERCK-0802USA02995

PATIENT
  Age: 84 Year
  Sex: Female
  Weight: 65 kg

DRUGS (16)
  1. FOSAMAX [Suspect]
     Route: 048
     Dates: end: 20071201
  2. LASIX [Suspect]
     Route: 065
     Dates: end: 20071201
  3. DIOVAN [Suspect]
     Route: 065
     Dates: end: 20071201
  4. HYDROCORTISONE OINTMENT [Concomitant]
     Route: 065
  5. NITROGLYCERIN [Concomitant]
     Route: 065
  6. PREVACID [Concomitant]
     Route: 065
  7. FOLIC ACID [Concomitant]
     Route: 065
  8. FERROUS SULFATE [Concomitant]
     Route: 065
  9. RENAGEL [Concomitant]
     Route: 065
  10. HYDRALAZINE [Concomitant]
     Route: 065
  11. METOPROLOL [Concomitant]
     Route: 065
  12. YEAST [Concomitant]
     Route: 065
  13. NORVASC [Concomitant]
     Route: 065
  14. COLACE [Concomitant]
     Route: 065
  15. LACTULOSE [Concomitant]
     Route: 065
  16. PROCRIT [Concomitant]
     Route: 065

REACTIONS (12)
  - ADVERSE EVENT [None]
  - ANAEMIA [None]
  - BLOOD CREATININE INCREASED [None]
  - BREATH SOUNDS ABNORMAL [None]
  - CARDIAC FAILURE [None]
  - DYSPNOEA [None]
  - EOSINOPHILIA [None]
  - HYPONATRAEMIA [None]
  - MYOCARDIAL INFARCTION [None]
  - MYOCARDIAL ISCHAEMIA [None]
  - RASH MACULO-PAPULAR [None]
  - RENAL FAILURE ACUTE [None]
